FAERS Safety Report 10733166 (Version 2)
Quarter: 2015Q1

REPORT INFORMATION
  Report Type: Spontaneous
  Country: SE (occurrence: None)
  Receive Date: 20150120
  Receipt Date: 20150205
  Transmission Date: 20150721
  Serious: Yes (Other)
  Sender: FDA-Public Use
  Company Number: FK201500185

PATIENT
  Age: 65 Year
  Sex: Male

DRUGS (1)
  1. BLEOMYCIN [Suspect]
     Active Substance: BLEOMYCIN SULFATE
     Indication: SQUAMOUS CELL CARCINOMA
     Dosage: INTRATUMOR
     Route: 036

REACTIONS (2)
  - Osteoradionecrosis [None]
  - Osteonecrosis of jaw [None]
